FAERS Safety Report 10978583 (Version 1)
Quarter: 2015Q1

REPORT INFORMATION
  Report Type: Spontaneous
  Country: GB (occurrence: None)
  Receive Date: 20150331
  Receipt Date: 20150331
  Transmission Date: 20150721
  Serious: Yes (Hospitalization)
  Sender: FDA-Public Use
  Company Number: GB-H14001-15-00487

PATIENT
  Age: 66 Year
  Sex: Female

DRUGS (20)
  1. PABRINEX (PARENTROVITE (UNKNOWN) (ASCORBIC ACID, PYRIDOXINE HYDROCHLORIDE, THIAMINE HYDROCHLORIDE, RIBOFLAVIN, NICOTINAMIDE) [Concomitant]
  2. CO-AMOXICLAV [Suspect]
     Active Substance: AMOXICILLIN\CLAVULANIC ACID
     Indication: LOWER RESPIRATORY TRACT INFECTION
     Dosage: 1965 MG (655 MG, 3 IN 1 D)
     Route: 048
     Dates: start: 20150206
  3. MEROPENEM (MEROPENEM) [Suspect]
     Active Substance: MEROPENEM
     Indication: LOWER RESPIRATORY TRACT INFECTION
     Dosage: 1000 MG (500 MG, 2 IN 1 D)
     Route: 042
     Dates: start: 20150207, end: 20150216
  4. GLYPRESSIN (TERLIPRESSIN ACETATE) [Concomitant]
  5. SPIRONOLACTONE. [Concomitant]
     Active Substance: SPIRONOLACTONE
  6. THIAMINE [Concomitant]
     Active Substance: THIAMINE
  7. PHOSPHATE SANDOZ EFFERVESCENT (PHOSPHATE-SANDOZ) (UNKNOWN) (SODIUM BICARBONATE, POTASSIUM BICARBONATE, SODIUM PHOSPHATE MONOBASIC (ANHYDRATE)) [Concomitant]
  8. PROPRANOLOL [Concomitant]
     Active Substance: PROPRANOLOL\PROPRANOLOL HYDROCHLORIDE
  9. CO-AMOXICLAV [Suspect]
     Active Substance: AMOXICILLIN\CLAVULANIC ACID
     Indication: LOWER RESPIRATORY TRACT INFECTION
     Dosage: 3.6 GM (1.2 GM,3 IN 1 D)
     Route: 042
     Dates: end: 20150207
  10. CHLORDIAZEPOXIDE [Concomitant]
     Active Substance: CHLORDIAZEPOXIDE
  11. DALIVIT (DALIVIT) (UNKNOWN) (ERGOCALCIFEROL, ASCORBIC ACID, PYRIDOXINE HYDROCHLORIDE, RETINOL, RIBOFLAVIN, NICOTINAMIDE, CALCIUM PANTOTHENATE, THIAMINE MONONITRATE) [Concomitant]
  12. SODIUM BICARBONATE. [Concomitant]
     Active Substance: SODIUM BICARBONATE
  13. FOLIC ACID. [Concomitant]
     Active Substance: FOLIC ACID
  14. LACTULOSE. [Concomitant]
     Active Substance: LACTULOSE
  15. OMEPRAZOLE. [Concomitant]
     Active Substance: OMEPRAZOLE
  16. SODIUM VALPROATE (VALPROATE SODIUM) [Concomitant]
     Active Substance: VALPROATE SODIUM
  17. ADCAL-D3 (LEKOVIT CA) (UNKNOWN) (COLECALCIFEROL, CALCIUM CARBONATE) [Concomitant]
  18. LEVOTHYROXINE [Concomitant]
     Active Substance: LEVOTHYROXINE
  19. PARACETAMOL [Concomitant]
     Active Substance: ACETAMINOPHEN
  20. RIFAXIMIN [Concomitant]
     Active Substance: RIFAXIMIN

REACTIONS (2)
  - Clostridium difficile infection [None]
  - Lower respiratory tract infection [None]

NARRATIVE: CASE EVENT DATE: 20150211
